FAERS Safety Report 6984611-5 (Version None)
Quarter: 2010Q3

REPORT INFORMATION
  Report Type: 
  Country: None (occurrence: None)
  Receive Date: 20100915
  Receipt Date: 20100906
  Transmission Date: 20110219
  Serious: Yes (Other)
  Sender: FDA-Public Use
  Company Number: JP-PFIZER INC-2010105618

PATIENT
  Age: 49 Year
  Sex: Female

DRUGS (3)
  1. SOLANAX [Suspect]
     Indication: ANXIETY
     Dosage: 0.4 MG, AS NEEDED
     Route: 048
     Dates: start: 20100806
  2. SILECE [Concomitant]
     Indication: INSOMNIA
     Dosage: 1 MG, UNKNOWN
     Route: 048
     Dates: start: 20100716
  3. YOKUKAN-SAN [Concomitant]
     Indication: INSOMNIA
     Dosage: UNK
     Route: 048
     Dates: start: 20100716

REACTIONS (1)
  - LENTIGO [None]
